FAERS Safety Report 10637551 (Version 8)
Quarter: 2015Q3

REPORT INFORMATION
  Report Type: Report from Study
  Country: US (occurrence: US)
  Receive Date: 20141208
  Receipt Date: 20150730
  Transmission Date: 20151125
  Serious: Yes (Death, Life-Threatening, Hospitalization, Other)
  Sender: FDA-Public Use
  Company Number: US-GLAXOSMITHKLINE-US2014022727

PATIENT
  Age: 64 Year
  Sex: Female
  Weight: 74 kg

DRUGS (4)
  1. DABRAFENIB [Suspect]
     Active Substance: DABRAFENIB
     Dosage: 100 MG, BID
     Route: 048
     Dates: start: 20140729, end: 20141110
  2. TRAMETINIB [Suspect]
     Active Substance: TRAMETINIB
     Dosage: 1.5 MG, QD
     Route: 048
     Dates: start: 20140729, end: 20141110
  3. DABRAFENIB [Suspect]
     Active Substance: DABRAFENIB
     Indication: NON-SMALL CELL LUNG CANCER
     Dosage: 150 MG, BID
     Route: 048
     Dates: start: 20140709, end: 20140726
  4. TRAMETINIB [Suspect]
     Active Substance: TRAMETINIB
     Indication: NON-SMALL CELL LUNG CANCER
     Dosage: 2 MG, QD
     Route: 048
     Dates: start: 20140709, end: 20140726

REACTIONS (2)
  - Retroperitoneal haemorrhage [Fatal]
  - Ventricular fibrillation [Not Recovered/Not Resolved]

NARRATIVE: CASE EVENT DATE: 20141114
